FAERS Safety Report 12298238 (Version 1)
Quarter: 2016Q2

REPORT INFORMATION
  Report Type: Spontaneous
  Country: US (occurrence: US)
  Receive Date: 20160423
  Receipt Date: 20160423
  Transmission Date: 20160815
  Serious: No
  Sender: FDA-Public Use
  Company Number: US-NATCO PHARMA LIMITED-1050920

PATIENT
  Sex: Female

DRUGS (1)
  1. RIZATRIPTAN BENZOATE ORALLY DISINTEGRATING TABLETS, 5 MG AND 10 MG [Suspect]
     Active Substance: RIZATRIPTAN BENZOATE
     Route: 048

REACTIONS (4)
  - Product solubility abnormal [None]
  - Product taste abnormal [None]
  - Product physical consistency issue [None]
  - Retching [None]
